FAERS Safety Report 16456288 (Version 1)
Quarter: 2019Q2

REPORT INFORMATION
  Report Type: Spontaneous
  Country: US (occurrence: US)
  Receive Date: 20190620
  Receipt Date: 20190620
  Transmission Date: 20190711
  Serious: Yes (Life-Threatening, Hospitalization, Other)
  Sender: FDA-Public Use
  Company Number: US-ACCORD-133579

PATIENT
  Age: 15 Year
  Sex: Male

DRUGS (3)
  1. ETOPOSIDE. [Suspect]
     Active Substance: ETOPOSIDE
     Indication: ACUTE MYELOID LEUKAEMIA
     Dosage: INDUCTION THERAPY
  2. CYTARABINE/CYTARABINE HYDROCHLORIDE/CYTARABINE OCFOSFATE [Suspect]
     Active Substance: CYTARABINE
     Indication: ACUTE MYELOID LEUKAEMIA
     Dosage: INDUCTION THERAPY
  3. DAUNORUBICIN [Suspect]
     Active Substance: DAUNORUBICIN
     Indication: ACUTE MYELOID LEUKAEMIA
     Dosage: INDUCTION THERAPY

REACTIONS (12)
  - Alpha haemolytic streptococcal infection [Unknown]
  - Neutropenia [Unknown]
  - Respiratory distress [Unknown]
  - Tachycardia [Unknown]
  - Ejection fraction decreased [Unknown]
  - Atelectasis [Unknown]
  - Colitis [Recovering/Resolving]
  - Mucosal inflammation [Recovering/Resolving]
  - Thrombocytopenia [Unknown]
  - Weight decreased [Unknown]
  - Septic shock [Unknown]
  - Anaemia [Unknown]
